FAERS Safety Report 13213952 (Version 2)
Quarter: 2017Q1

REPORT INFORMATION
  Report Type: Spontaneous
  Country: DE (occurrence: DE)
  Receive Date: 20170210
  Receipt Date: 20170329
  Transmission Date: 20170428
  Serious: Yes (Hospitalization)
  Sender: FDA-Public Use
  Company Number: DE-SHIRE-DE201702589

PATIENT
  Age: 51 Year
  Sex: Female

DRUGS (1)
  1. XAGRID [Suspect]
     Active Substance: ANAGRELIDE HYDROCHLORIDE
     Indication: PRODUCT USED FOR UNKNOWN INDICATION
     Dosage: 0.5 MG, 2X/DAY:BID (MORNINGS AND EVENINGS)
     Route: 048
     Dates: start: 2007, end: 201611

REACTIONS (5)
  - Adverse event [Unknown]
  - Anaemia [Unknown]
  - Syncope [Unknown]
  - Night sweats [Unknown]
  - Muscle fibrosis [Unknown]
